FAERS Safety Report 24920971 (Version 1)
Quarter: 2025Q1

REPORT INFORMATION
  Report Type: Spontaneous
  Country: US (occurrence: US)
  Receive Date: 20250204
  Receipt Date: 20250204
  Transmission Date: 20250409
  Serious: Yes (Hospitalization)
  Sender: LUPIN
  Company Number: US-LUPIN HEALTHCARE (UK) LIMITED-2025-00667

PATIENT
  Age: 65 Year
  Sex: Male

DRUGS (6)
  1. DIVALPROEX SODIUM [Suspect]
     Active Substance: DIVALPROEX SODIUM
     Indication: Antipsychotic therapy
     Route: 065
  2. DONEPEZIL [Suspect]
     Active Substance: DONEPEZIL
     Indication: Antipsychotic therapy
     Route: 065
  3. QUETIAPINE FUMARATE [Suspect]
     Active Substance: QUETIAPINE FUMARATE
     Indication: Antipsychotic therapy
     Route: 065
  4. ESCITALOPRAM [Suspect]
     Active Substance: ESCITALOPRAM OXALATE
     Indication: Antipsychotic therapy
     Route: 065
  5. CLONAZEPAM [Suspect]
     Active Substance: CLONAZEPAM
     Indication: Antipsychotic therapy
     Route: 065
  6. ARIPIPRAZOLE [Suspect]
     Active Substance: ARIPIPRAZOLE
     Indication: Antipsychotic therapy
     Route: 065

REACTIONS (1)
  - Parkinsonism [Not Recovered/Not Resolved]
